FAERS Safety Report 7331380-5 (Version None)
Quarter: 2011Q1

REPORT INFORMATION
  Report Type: 
  Country: None (occurrence: None)
  Receive Date: 20110304
  Receipt Date: 20110228
  Transmission Date: 20110831
  Serious: Yes (Death)
  Sender: FDA-Public Use
  Company Number: US-PFIZER INC-2010172797

PATIENT
  Sex: Male

DRUGS (12)
  1. KLOR-CON [Concomitant]
     Dosage: 10 MEQ/2 TIMES/DAY
  2. OXYCODONE HYDROCHLORIDE [Concomitant]
     Indication: PAIN
     Dosage: 5 MG EVERY 4 HOURS
     Route: 048
  3. LORTAB [Concomitant]
     Indication: PAIN
     Dosage: 500 MG EVERY 4 HOURS
     Route: 048
  4. CIPRO [Concomitant]
     Dosage: 500 MG EVERY 12/HOURS
     Route: 048
  5. HYTRIN [Concomitant]
     Dosage: 2 MG/DAY BEDTIME
     Route: 048
  6. LEVOTHYROXINE [Concomitant]
     Dosage: 150 MCG/DAY
     Route: 048
  7. VFEND [Suspect]
     Indication: INFECTION
     Dosage: 200 MG, UNK
     Route: 048
  8. HYDREA [Concomitant]
     Dosage: 500 MG/DAY
     Route: 048
  9. SPIRIVA [Concomitant]
     Dosage: 18 MCG/DAY
  10. ATIVAN [Concomitant]
     Dosage: 1 MG 3 TIMES/DAY
     Route: 048
  11. CARVEDILOL [Concomitant]
     Dosage: 12.5 MG/2 TIMES/DAY
     Route: 048
  12. LORAZEPAM [Concomitant]
     Dosage: 1 MG AS NEEDED

REACTIONS (3)
  - THROMBOCYTOPENIA [None]
  - ACUTE MYELOID LEUKAEMIA [None]
  - MYELODYSPLASTIC SYNDROME [None]
